FAERS Safety Report 7157611-2 (Version None)
Quarter: 2010Q4

REPORT INFORMATION
  Report Type: 
  Country: None (occurrence: None)
  Receive Date: 20101214
  Receipt Date: 20100302
  Transmission Date: 20110411
  Serious: No
  Sender: FDA-Public Use
  Company Number: US-ASTRAZENECA-2010SE09104

PATIENT
  Age: 65 Year
  Sex: Female
  Weight: 88.5 kg

DRUGS (7)
  1. CRESTOR [Suspect]
     Indication: BLOOD CHOLESTEROL INCREASED
     Route: 048
     Dates: start: 20080101, end: 20090601
  2. CRESTOR [Suspect]
     Route: 048
     Dates: start: 20090801, end: 20091001
  3. METOPROLOL [Suspect]
     Route: 065
  4. HUMALOG [Concomitant]
     Dosage: 5 UNITS DAILY
  5. HUMULIN N [Concomitant]
     Dosage: 35/30 UNITS BID
  6. ISOSORBIDE DINITRATE [Concomitant]
  7. LISINOPRIL [Concomitant]

REACTIONS (8)
  - ARTHRITIS [None]
  - BACK PAIN [None]
  - BLOOD CHOLESTEROL INCREASED [None]
  - CHEST DISCOMFORT [None]
  - DRUG INEFFECTIVE [None]
  - GAIT DISTURBANCE [None]
  - GLYCOSYLATED HAEMOGLOBIN INCREASED [None]
  - PAIN IN EXTREMITY [None]
